FAERS Safety Report 24416193 (Version 1)
Quarter: 2024Q4

REPORT INFORMATION
  Report Type: Spontaneous
  Country: US (occurrence: US)
  Receive Date: 20241009
  Receipt Date: 20241009
  Transmission Date: 20250115
  Serious: No
  Sender: MANKIND PHARMA
  Company Number: US-MankindUS-000222

PATIENT
  Sex: Female

DRUGS (1)
  1. NITROFURANTOIN [Suspect]
     Active Substance: NITROFURANTOIN
     Indication: Urinary tract infection
     Dosage: STRENGTH: 100 MG?PKG SIZE: 100
     Route: 048
     Dates: start: 20240711

REACTIONS (6)
  - Product substitution issue [Unknown]
  - Drug ineffective [Unknown]
  - Pain [Recovered/Resolved]
  - Dyspnoea [Recovered/Resolved]
  - Nausea [Recovered/Resolved]
  - Diarrhoea [Recovered/Resolved]

NARRATIVE: CASE EVENT DATE: 20240712
